FAERS Safety Report 8532946-7 (Version None)
Quarter: 2012Q3

REPORT INFORMATION
  Report Type: 
  Country: None (occurrence: None)
  Receive Date: 20120711
  Receipt Date: 20120627
  Transmission Date: 20120928
  Serious: Yes (Other)
  Sender: FDA-Public Use
  Company Number: FK201201820

PATIENT
  Age: 64 Year
  Sex: Male

DRUGS (1)
  1. AMIODARONE HCL [Suspect]
     Indication: PAROXYSMAL ARRHYTHMIA
     Dosage: 200 MG, DAILY, ORAL
     Route: 048

REACTIONS (4)
  - NEUROPATHY PERIPHERAL [None]
  - GAIT DISTURBANCE [None]
  - NEUROTOXICITY [None]
  - AXONAL NEUROPATHY [None]
